FAERS Safety Report 13149231 (Version 2)
Quarter: 2017Q1

REPORT INFORMATION
  Report Type: Spontaneous
  Country: US (occurrence: US)
  Receive Date: 20170125
  Receipt Date: 20170213
  Transmission Date: 20170428
  Serious: Yes (Hospitalization)
  Sender: FDA-Public Use
  Company Number: US-SMITH AND NEPHEW, INC-2017SMT00036

PATIENT
  Age: 71 Year
  Sex: Male
  Weight: 79.37 kg

DRUGS (5)
  1. UNSPECIFIED DIABETES MEDICATION [Concomitant]
  2. REGRANEX [Suspect]
     Active Substance: BECAPLERMIN
     Indication: WOUND
     Dosage: UNK
     Route: 061
     Dates: start: 201612, end: 20170107
  3. UNSPECIFIED INSULIN [Concomitant]
     Active Substance: INSULIN NOS
  4. UNSPECIFIED HEART MEDICATIONS [Concomitant]
  5. UNSPECIFIED OTHER MEDICATIONS [Concomitant]
     Active Substance: UNSPECIFIED INGREDIENT

REACTIONS (1)
  - Colitis [Unknown]

NARRATIVE: CASE EVENT DATE: 20170107
